FAERS Safety Report 8838881 (Version 1)
Quarter: 2012Q4

REPORT INFORMATION
  Report Type: Spontaneous
  Country: US (occurrence: None)
  Receive Date: 20121011
  Receipt Date: 20121011
  Transmission Date: 20130627
  Serious: Yes (Death)
  Sender: FDA-Public Use
  Company Number: None

PATIENT
  Age: 75 Year
  Sex: Female

DRUGS (9)
  1. REVLIMID [Suspect]
     Indication: MULTIPLE MYELOMA
     Dosage: 10mg qday orally
     Route: 048
     Dates: start: 200911, end: 201008
  2. REVLIMID [Suspect]
     Indication: MULTIPLE MYELOMA
     Dosage: 15mg qday orally
     Route: 048
     Dates: start: 201104, end: 201202
  3. WARFARIN [Concomitant]
  4. ALENDRONATE [Concomitant]
  5. ZOFRAN [Concomitant]
  6. ACYCLOVIR [Concomitant]
  7. CYMBALTA [Concomitant]
  8. LYRICA [Concomitant]
  9. PERCOCET [Concomitant]

REACTIONS (1)
  - Death [None]
